FAERS Safety Report 9287995 (Version 3)
Quarter: 2013Q4

REPORT INFORMATION
  Report Type: Spontaneous
  Country: US (occurrence: US)
  Receive Date: 20130514
  Receipt Date: 20131223
  Transmission Date: 20140711
  Serious: Yes (Hospitalization)
  Sender: FDA-Public Use
  Company Number: US-BAYER-2013-059499

PATIENT
  Age: 33 Year
  Sex: Female
  Weight: 72.56 kg

DRUGS (4)
  1. YAZ [Suspect]
     Dosage: UNK
  2. FLUOXETINE [Concomitant]
  3. SYNTHROID [Concomitant]
  4. CIPROFLOXACIN HCL [Concomitant]
     Dosage: 500 MG
     Route: 048
     Dates: start: 20080107

REACTIONS (11)
  - Pulmonary embolism [None]
  - Abdominal pain [None]
  - Pain [None]
  - Anxiety [None]
  - Emotional distress [None]
  - General physical health deterioration [None]
  - Injury [None]
  - Pain [None]
  - Chest pain [None]
  - Metrorrhagia [None]
  - Cold sweat [None]
